FAERS Safety Report 9496539 (Version 2)
Quarter: 2013Q4

REPORT INFORMATION
  Report Type: Spontaneous
  Country: US (occurrence: US)
  Receive Date: 20130904
  Receipt Date: 20131015
  Transmission Date: 20140711
  Serious: Yes (Hospitalization)
  Sender: FDA-Public Use
  Company Number: US-AMGEN-USASP2013061405

PATIENT
  Sex: 0

DRUGS (1)
  1. SENSIPAR [Suspect]
     Indication: BLOOD PARATHYROID HORMONE ABNORMAL
     Route: 065

REACTIONS (2)
  - Hospitalisation [Unknown]
  - Dysphagia [Unknown]
